FAERS Safety Report 7654939-4 (Version None)
Quarter: 2011Q3

REPORT INFORMATION
  Report Type: 
  Country: None (occurrence: None)
  Receive Date: 20110804
  Receipt Date: 20110726
  Transmission Date: 20111222
  Serious: Yes (Other)
  Sender: FDA-Public Use
  Company Number: US-BAYER-2011-040511

PATIENT
  Age: 29 Year
  Sex: Female
  Weight: 51 kg

DRUGS (11)
  1. YAZ [Suspect]
     Indication: PREMENSTRUAL SYNDROME
     Dosage: UNK
     Dates: start: 20040101, end: 20100101
  2. YASMIN [Suspect]
     Indication: PREMENSTRUAL SYNDROME
     Dosage: UNK
     Dates: start: 20040101, end: 20100101
  3. MYLANTA [Concomitant]
     Indication: ABDOMINAL PAIN UPPER
     Dosage: UNK
     Dates: start: 20010101, end: 20060101
  4. FIORICET [Concomitant]
     Indication: MIGRAINE
     Dosage: UNK
     Dates: start: 20010101
  5. YAZ [Suspect]
  6. KLONOPIN [Concomitant]
     Indication: MENTAL DISORDER
     Dosage: UNK
     Dates: start: 20020101
  7. LAMICTAL [Concomitant]
     Indication: MENTAL DISORDER
     Dosage: UNK
     Dates: start: 20020101
  8. SENNALAX [Concomitant]
     Indication: ABDOMINAL PAIN UPPER
     Dosage: UNK
     Dates: start: 20010101, end: 20060101
  9. WELLBUTRIN SR [Concomitant]
     Indication: MENTAL DISORDER
     Dosage: UNK
     Dates: start: 20020101
  10. YASMIN [Suspect]
  11. BISMUTH SUBSALICYLATE [Concomitant]
     Indication: ABDOMINAL PAIN UPPER
     Dosage: UNK
     Dates: start: 20010101, end: 20060101

REACTIONS (11)
  - ABDOMINAL DISCOMFORT [None]
  - CHOLELITHIASIS [None]
  - PAIN [None]
  - GASTROINTESTINAL DISORDER [None]
  - IRRITABLE BOWEL SYNDROME [None]
  - MOOD SWINGS [None]
  - MENTAL DISORDER [None]
  - CHOLECYSTITIS [None]
  - GASTRIC DISORDER [None]
  - WEIGHT INCREASED [None]
  - GALLBLADDER DISORDER [None]
